FAERS Safety Report 5443280-6 (Version None)
Quarter: 2007Q3

REPORT INFORMATION
  Report Type: 
  Country: None (occurrence: None)
  Receive Date: 20070905
  Receipt Date: 20070824
  Transmission Date: 20080115
  Serious: Yes (Hospitalization)
  Sender: FDA-Public Use
  Company Number: HQWYE445822MAY06

PATIENT
  Sex: Female
  Weight: 68 kg

DRUGS (15)
  1. SIROLIMUS [Suspect]
     Indication: PROPHYLAXIS AGAINST TRANSPLANT REJECTION
     Route: 048
     Dates: start: 20060109, end: 20060123
  2. SIROLIMUS [Suspect]
     Route: 048
     Dates: start: 20060212, end: 20060217
  3. SIROLIMUS [Suspect]
     Route: 048
     Dates: start: 20060218, end: 20060303
  4. SIROLIMUS [Suspect]
     Route: 048
     Dates: start: 20060304, end: 20060622
  5. MYCOPHENOLATE MOFETIL [Concomitant]
     Indication: PROPHYLAXIS AGAINST TRANSPLANT REJECTION
     Dates: start: 20050114, end: 20060502
  6. MYCOPHENOLATE MOFETIL [Concomitant]
     Dates: start: 20060503
  7. CYCLOSPORINE [Concomitant]
     Indication: PROPHYLAXIS AGAINST TRANSPLANT REJECTION
     Dates: start: 20060104, end: 20060211
  8. CYCLOSPORINE [Concomitant]
     Dates: start: 20060212, end: 20060220
  9. LACTULOSE [Concomitant]
     Dosage: UNSPECIFIED
     Dates: start: 20051023
  10. METAMIZOLE SODIUM [Concomitant]
     Dosage: UNSPECIFIED
     Dates: start: 20051003
  11. PANTOPRAZOLE SODIUM [Concomitant]
     Dosage: UNSPECIFIED
     Dates: start: 20060131, end: 20060601
  12. TORSEMIDE [Concomitant]
     Dosage: UNSPECIFIED
     Dates: start: 20060205, end: 20060312
  13. SPIRONOLACTONE [Concomitant]
     Dosage: UNSPECIFIED
     Dates: start: 20060220
  14. URSODIOL [Concomitant]
     Dosage: UNSPECIFIED
     Dates: start: 20040802
  15. PARACETAMOL [Concomitant]
     Dosage: UNSPECIFIED
     Dates: start: 20051003

REACTIONS (2)
  - HERNIA [None]
  - SEROMA [None]
